FAERS Safety Report 16721748 (Version 1)
Quarter: 2019Q3

REPORT INFORMATION
  Report Type: Spontaneous
  Country: FR (occurrence: FR)
  Receive Date: 20190820
  Receipt Date: 20190820
  Transmission Date: 20191005
  Serious: Yes (Hospitalization)
  Sender: FDA-Public Use
  Company Number: FR-TEVA-2019-FR-1094312

PATIENT
  Age: 76 Year
  Sex: Female
  Weight: 85 kg

DRUGS (10)
  1. CARBOPLATINE [Suspect]
     Active Substance: CARBOPLATIN
     Indication: LUNG CANCER METASTATIC
     Route: 042
     Dates: start: 20190705, end: 20190705
  2. BROMAZEPAM [Concomitant]
     Active Substance: BROMAZEPAM
  3. PREGABALINE [Concomitant]
     Active Substance: PREGABALIN
  4. NAVELBINE [Suspect]
     Active Substance: VINORELBINE TARTRATE
     Indication: LUNG CANCER METASTATIC
     Route: 042
     Dates: start: 20190712, end: 20190712
  5. MIANSERINE (CHLORHYDRATE DE) [Concomitant]
     Active Substance: MIANSERIN HYDROCHLORIDE
  6. LEVOTHYROX 50 MICROGRAMMES, COMPRIM? S?CABLE [Concomitant]
     Active Substance: LEVOTHYROXINE SODIUM
  7. FENTANYL. [Concomitant]
     Active Substance: FENTANYL
  8. PREDNISONE. [Concomitant]
     Active Substance: PREDNISONE
  9. TRIMEBUTINE [Concomitant]
     Active Substance: TRIMEBUTINE
  10. NIVESTIM [Concomitant]
     Active Substance: FILGRASTIM

REACTIONS (3)
  - Asthenia [Not Recovered/Not Resolved]
  - Diarrhoea [Recovered/Resolved]
  - Febrile bone marrow aplasia [Not Recovered/Not Resolved]

NARRATIVE: CASE EVENT DATE: 20190714
